FAERS Safety Report 18812030 (Version 1)
Quarter: 2021Q1

REPORT INFORMATION
  Report Type: Spontaneous
  Country: US (occurrence: US)
  Receive Date: 20210129
  Receipt Date: 20210129
  Transmission Date: 20210419
  Serious: Yes (Other)
  Sender: FDA-Public Use
  Company Number: US-PFIZER INC-2017460973

PATIENT
  Age: 81 Year
  Sex: Female

DRUGS (2)
  1. LYRICA [Suspect]
     Active Substance: PREGABALIN
     Indication: NEUROPATHY PERIPHERAL
     Dosage: 200 MG, 3X/DAY
     Route: 048
  2. EFFEXOR XR [Suspect]
     Active Substance: VENLAFAXINE HYDROCHLORIDE
     Indication: NEUROPATHY PERIPHERAL
     Dosage: UNK

REACTIONS (3)
  - Off label use [Unknown]
  - Neuropathy peripheral [Recovering/Resolving]
  - Drug effective for unapproved indication [Unknown]
